FAERS Safety Report 4696806-4 (Version None)
Quarter: 2005Q2

REPORT INFORMATION
  Report Type: 
  Country: None (occurrence: None)
  Receive Date: 20050622
  Receipt Date: 20050616
  Transmission Date: 20051028
  Serious: Yes (Hospitalization)
  Sender: FDA-Public Use
  Company Number: US-BRISTOL-MYERS SQUIBB COMPANY-13005673

PATIENT
  Age: 54 Year
  Sex: Male
  Weight: 67 kg

DRUGS (12)
  1. CETUXIMAB [Suspect]
     Indication: NON-SMALL CELL LUNG CANCER
     Route: 042
     Dates: start: 20050601, end: 20050601
  2. CARBOPLATIN [Suspect]
     Indication: NON-SMALL CELL LUNG CANCER
     Route: 042
     Dates: start: 20050425, end: 20050425
  3. DOCETAXEL [Suspect]
     Indication: NON-SMALL CELL LUNG CANCER
     Route: 042
     Dates: start: 20050425, end: 20050425
  4. COUMADIN [Concomitant]
  5. DURAGESIC-100 [Concomitant]
  6. HYDROCODONE BITARTRATE [Concomitant]
  7. K-DUR 10 [Concomitant]
  8. LASIX [Concomitant]
  9. MAGNESIUM OXIDE [Concomitant]
  10. NAPROXEN [Concomitant]
  11. NEURONTIN [Concomitant]
  12. XANAX [Concomitant]

REACTIONS (3)
  - DEHYDRATION [None]
  - DIARRHOEA [None]
  - NEUROPATHY PERIPHERAL [None]
